FAERS Safety Report 8250353-1 (Version None)
Quarter: 2012Q1

REPORT INFORMATION
  Report Type: 
  Country: None (occurrence: None)
  Receive Date: 20120328
  Receipt Date: 20120317
  Transmission Date: 20120608
  Serious: Yes (Other)
  Sender: FDA-Public Use
  Company Number: 2012AP000755

PATIENT
  Age: 53 Year
  Sex: Female

DRUGS (6)
  1. LAMOTRIGINE [Suspect]
     Indication: TRIGEMINAL NEURALGIA
     Dates: start: 20071001, end: 20081230
  2. GABAPENTIN [Concomitant]
  3. BACLOFEN [Concomitant]
  4. IRBESARTAN [Concomitant]
  5. CARBAMAZEPINE [Suspect]
     Indication: TRIGEMINAL NEURALGIA
     Dosage: 200 MG; UNKNOWN; BID
     Dates: start: 20060401, end: 20080401
  6. SIMVASTATIN [Concomitant]

REACTIONS (2)
  - HYPOGAMMAGLOBULINAEMIA [None]
  - FALL [None]
